FAERS Safety Report 15560682 (Version 1)
Quarter: 2018Q4

REPORT INFORMATION
  Report Type: Spontaneous
  Country: US (occurrence: US)
  Receive Date: 20181023
  Receipt Date: 20181023
  Transmission Date: 20190205
  Serious: Yes (Hospitalization)
  Sender: FDA-Public Use
  Company Number: None

PATIENT
  Age: 88 Year
  Sex: Male

DRUGS (1)
  1. DAPTOMYCIN 500MG TEVA [Suspect]
     Active Substance: DAPTOMYCIN
     Indication: BACTERAEMIA
     Route: 042
     Dates: start: 20180828, end: 20181016

REACTIONS (1)
  - Eosinophilia [None]

NARRATIVE: CASE EVENT DATE: 20181015
